FAERS Safety Report 5216801-6 (Version None)
Quarter: 2007Q1

REPORT INFORMATION
  Report Type: 
  Country: None (occurrence: None)
  Receive Date: 20070119
  Receipt Date: 20070117
  Transmission Date: 20070707
  Serious: Yes (Hospitalization)
  Sender: FDA-Public Use
  Company Number: 2006SP003840

PATIENT
  Age: 60 Year
  Sex: Male
  Weight: 64.5 kg

DRUGS (9)
  1. XOPENEX [Suspect]
     Indication: CHRONIC OBSTRUCTIVE PULMONARY DISEASE
     Dosage: 90 UG; PRN; INHALATION
     Route: 055
     Dates: start: 20060515
  2. VERAPAMIL [Concomitant]
  3. SOMA [Concomitant]
  4. XANAX [Concomitant]
  5. METHADONE [Concomitant]
  6. BACLOFEN [Concomitant]
  7. EXCEDRIN (MIGRAINE) [Concomitant]
  8. ROLAIDS [Concomitant]
  9. LYRICA [Concomitant]

REACTIONS (14)
  - AORTIC ARTERIOSCLEROSIS [None]
  - ATRIAL FIBRILLATION [None]
  - ATRIAL TACHYCARDIA [None]
  - BLOOD GLUCOSE INCREASED [None]
  - BLOOD SODIUM DECREASED [None]
  - CLAVICLE FRACTURE [None]
  - EMPHYSEMA [None]
  - HAEMOPTYSIS [None]
  - MYCOBACTERIUM AVIUM COMPLEX INFECTION [None]
  - PNEUMONIA [None]
  - RESPIRATORY FAILURE [None]
  - RIB FRACTURE [None]
  - SINUS TACHYCARDIA [None]
  - SYSTOLIC HYPERTENSION [None]
